FAERS Safety Report 10994906 (Version 2)
Quarter: 2015Q2

REPORT INFORMATION
  Report Type: Report from Study
  Country: JP (occurrence: JP)
  Receive Date: 20150407
  Receipt Date: 20150504
  Transmission Date: 20150821
  Serious: Yes (Death, Hospitalization)
  Sender: FDA-Public Use
  Company Number: JP-009507513-1305JPN005594

PATIENT
  Age: 73 Year
  Sex: Female
  Weight: 38 kg

DRUGS (27)
  1. TEMOZOLOMIDE. [Suspect]
     Active Substance: TEMOZOLOMIDE
     Dosage: 150 MG/M2, QD
     Route: 041
     Dates: start: 20110420, end: 20110424
  2. POTASSIUM ASPARTATE [Concomitant]
     Active Substance: POTASSIUM ASPARTATE
     Dosage: DAILY DOSAGE UNKNOWN, FORMULATION: POR
     Route: 048
     Dates: start: 20100708, end: 20110126
  3. TEMODAL [Suspect]
     Active Substance: TEMOZOLOMIDE
     Dosage: 200 MG/M2, QD
     Route: 048
     Dates: start: 20110115, end: 20110119
  4. LUVOX [Concomitant]
     Active Substance: FLUVOXAMINE MALEATE
     Dosage: DAILY DOSAGE UNKNOWN
     Route: 048
     Dates: start: 20100615, end: 20100811
  5. AMLODIN OD [Concomitant]
     Active Substance: AMLODIPINE BESYLATE
     Dosage: DAILY DOSAGE UNKNOWN
     Route: 048
     Dates: start: 20100605, end: 20100721
  6. PREDNISOLONE. [Concomitant]
     Active Substance: PREDNISOLONE
     Dosage: DAILY DOSAGE UNKNOWN
     Route: 048
     Dates: start: 20100702, end: 20110126
  7. WARFARIN [Concomitant]
     Active Substance: WARFARIN
     Dosage: DAILY DOSAGE UNKNOWN
     Route: 048
     Dates: start: 20100615, end: 20110126
  8. GRANISETRON HYDROCHLORIDE. [Concomitant]
     Active Substance: GRANISETRON HYDROCHLORIDE
     Dosage: DAILY DOSAGE UNKNOWN
     Route: 041
     Dates: start: 20110530, end: 20110603
  9. TEMOZOLOMIDE. [Suspect]
     Active Substance: TEMOZOLOMIDE
     Indication: GLIOBLASTOMA MULTIFORME
     Dosage: 75 MG/M2, QD
     Route: 041
     Dates: start: 20100712, end: 20100716
  10. TEMODAL [Suspect]
     Active Substance: TEMOZOLOMIDE
     Dosage: 150 MG/M2, QD
     Route: 048
     Dates: start: 20101110, end: 20101114
  11. MEVALOTIN [Concomitant]
     Active Substance: PRAVASTATIN SODIUM
     Dosage: DAILY DOSAGE UNKNOWN
     Route: 048
     Dates: start: 20100615, end: 20100825
  12. ROCEPHIN [Concomitant]
     Active Substance: CEFTRIAXONE SODIUM
     Dosage: DAILY DOSAGE UNKNOWN
     Route: 041
     Dates: start: 20100709, end: 20100712
  13. GRANISETRON HYDROCHLORIDE. [Concomitant]
     Active Substance: GRANISETRON HYDROCHLORIDE
     Dosage: DAILY DOSAGE UNKNOWN
     Route: 041
     Dates: start: 20110420, end: 20110424
  14. GASTER [Concomitant]
     Active Substance: FAMOTIDINE
     Indication: PROPHYLAXIS
     Dosage: DAILY DOSAGE UNKNOWN
     Route: 048
     Dates: start: 20100708, end: 20110126
  15. SUNRYTHM [Concomitant]
     Active Substance: PILSICAINIDE HYDROCHLORIDE
     Dosage: DAILY DOSAGE UNKNOWN
     Route: 048
     Dates: start: 20100624, end: 20110126
  16. BAKTAR [Concomitant]
     Active Substance: SULFAMETHOXAZOLE\TRIMETHOPRIM
     Indication: ANTIFUNGAL PROPHYLAXIS
     Dosage: DAILY DOSE UNKNOWN, FORMULATION: POR
     Route: 048
     Dates: start: 20100712, end: 20110124
  17. FRUCTOSE (+) GLYCERIN [Concomitant]
     Indication: GLIOBLASTOMA MULTIFORME
     Dosage: DAILY DOSAGE UNKNOWN
     Route: 041
     Dates: start: 20100524, end: 20100721
  18. TEMODAL [Suspect]
     Active Substance: TEMOZOLOMIDE
     Dosage: 200 MG/M2, QD
     Route: 048
     Dates: start: 20101210, end: 20101214
  19. HALFDIGOXIN [Concomitant]
     Active Substance: DIGOXIN
     Dosage: DAILY DOSAGE UNKNOWN
     Route: 048
     Dates: start: 20100615, end: 20110126
  20. BLOPRESS [Concomitant]
     Active Substance: CANDESARTAN CILEXETIL
     Dosage: DAILY DOSAGE UNKNOWN
     Route: 048
     Dates: start: 20100615, end: 20110126
  21. TEMODAL [Suspect]
     Active Substance: TEMOZOLOMIDE
     Indication: GLIOBLASTOMA MULTIFORME
     Dosage: 75 MG/M2, QD
     Route: 048
     Dates: start: 20100727, end: 20100823
  22. TEMODAL [Suspect]
     Active Substance: TEMOZOLOMIDE
     Dosage: 150 MG/M2, QD
     Route: 048
     Dates: start: 20101002, end: 20101006
  23. MOBENZOCIN [Suspect]
     Active Substance: CEFTAZIDIME
     Indication: URINARY TRACT INFECTION
     Dosage: DAILY DOSE UNKNOWN
     Route: 041
     Dates: start: 20110605, end: 20110607
  24. EBRANTIL [Concomitant]
     Active Substance: URAPIDIL
     Dosage: DAILY DOSAGE UNKNOWN
     Route: 048
     Dates: start: 20100709, end: 20100811
  25. TEMOZOLOMIDE. [Suspect]
     Active Substance: TEMOZOLOMIDE
     Dosage: 150 MG/M2, QD
     Route: 041
     Dates: start: 20110530, end: 20110603
  26. AMARYL [Concomitant]
     Active Substance: GLIMEPIRIDE
     Dosage: DAILY DOSAGE UNKNOWN
     Route: 048
     Dates: start: 20100615, end: 20100825
  27. GRANISETRON HYDROCHLORIDE. [Concomitant]
     Active Substance: GRANISETRON HYDROCHLORIDE
     Indication: PROPHYLAXIS
     Dosage: DAILY DOSAGE UNKNOWN
     Route: 041
     Dates: start: 20100613, end: 20100716

REACTIONS (17)
  - Vomiting [Recovering/Resolving]
  - C-reactive protein increased [Recovered/Resolved]
  - Urinary tract infection [Not Recovered/Not Resolved]
  - Anaemia [Recovered/Resolved]
  - Disease progression [Fatal]
  - Constipation [Recovered/Resolved]
  - Hyponatraemia [Recovered/Resolved]
  - Pneumatosis intestinalis [Recovered/Resolved]
  - Platelet count decreased [Recovered/Resolved]
  - Hepatic function abnormal [Not Recovered/Not Resolved]
  - Neutropenia [Recovered/Resolved]
  - Anaemia [Not Recovered/Not Resolved]
  - White blood cell count decreased [Recovered/Resolved]
  - Platelet count decreased [Not Recovered/Not Resolved]
  - Anaemia [Recovered/Resolved]
  - White blood cell count decreased [Recovered/Resolved]
  - Hypochloraemia [Recovered/Resolved]

NARRATIVE: CASE EVENT DATE: 20100714
